FAERS Safety Report 13018244 (Version 2)
Quarter: 2016Q4

REPORT INFORMATION
  Report Type: Spontaneous
  Country: IT (occurrence: IT)
  Receive Date: 20161212
  Receipt Date: 20161220
  Transmission Date: 20170207
  Serious: Yes (Death)
  Sender: FDA-Public Use
  Company Number: IT-ABBVIE-16P-083-1803838-00

PATIENT
  Age: 77 Year
  Sex: Female

DRUGS (2)
  1. VIEKIRAX [Suspect]
     Active Substance: OMBITASVIR\PARITAPREVIR\RITONAVIR
     Indication: HEPATIC CIRRHOSIS
     Dosage: DAILY
     Route: 048
     Dates: start: 20150917, end: 20150926
  2. EXVIERA [Suspect]
     Active Substance: DASABUVIR
     Indication: HEPATIC CIRRHOSIS
     Dosage: DAILY
     Route: 048
     Dates: start: 20150917, end: 20150926

REACTIONS (3)
  - Death [Fatal]
  - Hyperbilirubinaemia [Fatal]
  - Hepatic failure [Fatal]

NARRATIVE: CASE EVENT DATE: 20150926
